FAERS Safety Report 10471369 (Version 13)
Quarter: 2016Q1

REPORT INFORMATION
  Report Type: Spontaneous
  Country: US (occurrence: US)
  Receive Date: 20140923
  Receipt Date: 20160129
  Transmission Date: 20160525
  Serious: Yes (Hospitalization, Other)
  Sender: FDA-Public Use
  Company Number: US-PFIZER INC-2014262188

PATIENT
  Age: 49 Year
  Sex: Female
  Weight: 63 kg

DRUGS (22)
  1. METHADONE [Concomitant]
     Active Substance: METHADONE HYDROCHLORIDE
     Indication: PAIN
     Dosage: 10 MG, UNK
     Dates: start: 201211
  2. METHADONE [Concomitant]
     Active Substance: METHADONE HYDROCHLORIDE
     Dosage: UNK, 1X/DAY (50-80 MG A DAY)
     Route: 048
     Dates: start: 2013
  3. LYRICA [Suspect]
     Active Substance: PREGABALIN
     Indication: PAIN
     Dosage: 300 MG, 2X/DAY
     Route: 048
     Dates: start: 2008
  4. XANAX XR [Concomitant]
     Active Substance: ALPRAZOLAM
     Indication: ANXIETY
     Dosage: 2 MG, 3X/DAY
     Dates: start: 2003, end: 2015
  5. XANAX XR [Concomitant]
     Active Substance: ALPRAZOLAM
     Dosage: 5 MG, UNK
  6. LYRICA [Suspect]
     Active Substance: PREGABALIN
     Indication: COMPLEX REGIONAL PAIN SYNDROME
     Dosage: 300 MG, 3X/DAY
     Route: 048
     Dates: start: 200801
  7. XANAX-XR [Concomitant]
     Dosage: 3 MG, 2X/DAY (EVERY 12 HRS)
     Dates: start: 2013
  8. SEROQUEL [Concomitant]
     Active Substance: QUETIAPINE FUMARATE
     Indication: AFFECTIVE DISORDER
     Dosage: 100 MG, UNK
     Dates: start: 200407
  9. SEROQUEL [Concomitant]
     Active Substance: QUETIAPINE FUMARATE
     Dosage: 75 MG, DAILY (25 MG IN THE MORNING AND 50 MG ORALLY AT NIGHT)
     Route: 048
     Dates: start: 2005
  10. METHADONE [Concomitant]
     Active Substance: METHADONE HYDROCHLORIDE
     Dosage: 50 MG, DAILY
     Route: 048
     Dates: start: 2013
  11. LYRICA [Suspect]
     Active Substance: PREGABALIN
     Indication: FIBROMYALGIA
     Dosage: 300 MG, 3X/DAY
     Route: 048
     Dates: start: 200805, end: 201507
  12. SEROQUEL [Concomitant]
     Active Substance: QUETIAPINE FUMARATE
     Dosage: 100 MG DAILY (50MG AT BEDTIME AND 50MG WHEN SHE WAKES UP)
     Dates: start: 2005
  13. IBUPROFEN. [Concomitant]
     Active Substance: IBUPROFEN
     Indication: ARTHRITIS
     Dosage: 600 MG, 1X/DAY (THREE 200MG IN THE MORNING)
     Dates: start: 2006
  14. XANAX XR [Concomitant]
     Active Substance: ALPRAZOLAM
     Dosage: 30 MG, UNK
  15. LYRICA [Suspect]
     Active Substance: PREGABALIN
     Indication: NEURALGIA
     Dosage: 900 MG, 1X/DAY (THREE 300MG CAPSULES A DAY; ONE AT 9AM, 2PM AND 9PM)
     Route: 048
     Dates: start: 2010
  16. LIPITOR [Concomitant]
     Active Substance: ATORVASTATIN CALCIUM
     Dosage: UNK
     Dates: start: 201108
  17. VALIUM [Concomitant]
     Active Substance: DIAZEPAM
     Dosage: UNK, 3X/DAY
  18. XANAX XR [Concomitant]
     Active Substance: ALPRAZOLAM
     Dosage: 10 MG, UNK
  19. XANAX-XR [Concomitant]
     Indication: ANXIETY
     Dosage: 3 MG, 2X/DAY
     Dates: start: 2003
  20. XANAX-XR [Concomitant]
     Dosage: 3 MG, UNK
     Dates: start: 200407
  21. TORSEMIDE. [Concomitant]
     Active Substance: TORSEMIDE
     Dosage: 1/3 OF 20MG ONCE DAILY
     Route: 048
     Dates: start: 2010
  22. DIAZEPAM. [Concomitant]
     Active Substance: DIAZEPAM
     Indication: ANXIETY
     Dosage: 10 MG, 3X/DAY
     Route: 048
     Dates: start: 2015

REACTIONS (21)
  - Prescribed overdose [Unknown]
  - Condition aggravated [Unknown]
  - Impaired work ability [Unknown]
  - Osteoarthritis [Recovering/Resolving]
  - Drug dependence [Unknown]
  - Hypoaesthesia [Not Recovered/Not Resolved]
  - Arthralgia [Unknown]
  - Movement disorder [Unknown]
  - Crying [Unknown]
  - Pain [Unknown]
  - Tremor [Unknown]
  - Arthralgia [Not Recovered/Not Resolved]
  - Back pain [Unknown]
  - Vomiting [Unknown]
  - Retching [Unknown]
  - Drug ineffective for unapproved indication [Not Recovered/Not Resolved]
  - Dysphagia [Not Recovered/Not Resolved]
  - Suicidal ideation [Unknown]
  - Drug withdrawal syndrome [Unknown]
  - Diarrhoea [Unknown]
  - Nausea [Unknown]

NARRATIVE: CASE EVENT DATE: 200801
